FAERS Safety Report 4555944-7 (Version None)
Quarter: 2005Q1

REPORT INFORMATION
  Report Type: 
  Country: None (occurrence: None)
  Receive Date: 20050119
  Receipt Date: 20050112
  Transmission Date: 20050727
  Serious: Yes (Hospitalization)
  Sender: FDA-Public Use
  Company Number: US-MERCK-0501USA01314

PATIENT
  Age: 84 Year
  Sex: Female

DRUGS (9)
  1. MEPHYTON [Suspect]
     Indication: INTERNATIONAL NORMALISED RATIO INCREASED
     Route: 048
     Dates: start: 20041201, end: 20041201
  2. MEPHYTON [Suspect]
     Route: 048
     Dates: start: 20041201, end: 20041201
  3. COUMADIN [Concomitant]
     Route: 065
  4. TOPROL-XL [Concomitant]
     Route: 065
  5. LASIX [Concomitant]
     Route: 065
  6. ALTACE [Concomitant]
     Route: 065
  7. SYNTHROID [Concomitant]
     Route: 065
  8. CALCIUM CHLORIDE [Concomitant]
     Route: 065
  9. VICODIN [Concomitant]
     Route: 065

REACTIONS (1)
  - RASH PRURITIC [None]
